FAERS Safety Report 7653506-6 (Version None)
Quarter: 2011Q3

REPORT INFORMATION
  Report Type: 
  Country: None (occurrence: None)
  Receive Date: 20110803
  Receipt Date: 20110725
  Transmission Date: 20111222
  Serious: Yes (Other)
  Sender: FDA-Public Use
  Company Number: FR-NOVOPROD-332529

PATIENT

DRUGS (7)
  1. ATACAND [Concomitant]
  2. DIAMICRON [Concomitant]
  3. VICTOZA [Suspect]
     Indication: TYPE 2 DIABETES MELLITUS
     Dosage: UNK
     Route: 065
     Dates: start: 20110628
  4. EZETIMIBE [Concomitant]
  5. ASPEGIC 1000 [Concomitant]
  6. AMLODIPINE BESYLATE [Concomitant]
  7. GLUCOPHAGE [Concomitant]

REACTIONS (1)
  - HERPES ZOSTER [None]
